FAERS Safety Report 5592716-9 (Version None)
Quarter: 2007Q4

REPORT INFORMATION
  Report Type: 
  Country: None (occurrence: None)
  Receive Date: 20071217
  Receipt Date: 20071016
  Transmission Date: 20080405
  Serious: No
  Sender: FDA-Public Use
  Company Number: BDI-010373

PATIENT
  Age: 50 Year
  Sex: Male
  Weight: 82 kg

DRUGS (4)
  1. MULTIHANCE [Suspect]
     Indication: ANGIOGRAM PERIPHERAL
     Dosage: IV
     Route: 042
     Dates: start: 20071015, end: 20071015
  2. MULTIHANCE [Suspect]
     Indication: PAIN
     Dosage: IV
     Route: 042
     Dates: start: 20071015, end: 20071015
  3. MULTIHANCE [Suspect]
     Indication: ANGIOGRAM PERIPHERAL
     Dosage: IV
     Route: 042
     Dates: start: 20071015, end: 20071015
  4. MULTIHANCE [Suspect]
     Indication: PAIN
     Dosage: IV
     Route: 042
     Dates: start: 20071015, end: 20071015

REACTIONS (1)
  - HYPERSENSITIVITY [None]
